FAERS Safety Report 17809475 (Version 2)
Quarter: 2020Q3

REPORT INFORMATION
  Report Type: Spontaneous
  Country: NZ (occurrence: NZ)
  Receive Date: 20200521
  Receipt Date: 20200804
  Transmission Date: 20201102
  Serious: Yes (Other)
  Sender: FDA-Public Use
  Company Number: NZ-ROCHE-2602156

PATIENT
  Sex: Male
  Weight: 75 kg

DRUGS (3)
  1. SOLIFENACIN [Concomitant]
     Active Substance: SOLIFENACIN
     Route: 048
  2. MODAFINIL. [Concomitant]
     Active Substance: MODAFINIL
     Route: 048
  3. OCREVUS [Suspect]
     Active Substance: OCRELIZUMAB
     Indication: MULTIPLE SCLEROSIS
     Route: 042
     Dates: start: 20191003

REACTIONS (4)
  - Tongue disorder [Recovered/Resolved]
  - Throat irritation [Recovered/Resolved]
  - Pharyngeal swelling [Recovered/Resolved]
  - Throat tightness [Recovered/Resolved]

NARRATIVE: CASE EVENT DATE: 20200409
